FAERS Safety Report 13295768 (Version 6)
Quarter: 2019Q1

REPORT INFORMATION
  Report Type: Report from Study
  Country: US (occurrence: US)
  Receive Date: 20170303
  Receipt Date: 20190311
  Transmission Date: 20190417
  Serious: Yes (Hospitalization)
  Sender: FDA-Public Use
  Company Number: US-ACTELION-A-US2017-150675

PATIENT
  Age: 85 Year
  Sex: Female

DRUGS (12)
  1. PRAVASTATIN. [Concomitant]
     Active Substance: PRAVASTATIN
  2. ATIVAN [Concomitant]
     Active Substance: LORAZEPAM
  3. NORTRIPTYLINE [Concomitant]
     Active Substance: NORTRIPTYLINE
  4. NORCO [Concomitant]
     Active Substance: ACETAMINOPHEN\HYDROCODONE BITARTRATE
  5. RAMIPRIL. [Concomitant]
     Active Substance: RAMIPRIL
  6. PLAVIX [Concomitant]
     Active Substance: CLOPIDOGREL BISULFATE
  7. LIDOCAINE. [Concomitant]
     Active Substance: LIDOCAINE
  8. OPSUMIT [Suspect]
     Active Substance: MACITENTAN
     Indication: PULMONARY ARTERIAL HYPERTENSION
     Dosage: 10 MG, QD
     Route: 048
     Dates: start: 20160413
  9. CYMBALTA [Concomitant]
     Active Substance: DULOXETINE HYDROCHLORIDE
  10. NITROGLYCERIN. [Concomitant]
     Active Substance: NITROGLYCERIN
  11. MIRAPEX [Concomitant]
     Active Substance: PRAMIPEXOLE DIHYDROCHLORIDE
  12. LOTRISONE [Concomitant]
     Active Substance: BETAMETHASONE DIPROPIONATE\CLOTRIMAZOLE

REACTIONS (8)
  - Atrial fibrillation [Unknown]
  - Pulmonary arterial hypertension [Recovering/Resolving]
  - Pneumonia [Unknown]
  - Dizziness [Unknown]
  - Dyspnoea [Recovering/Resolving]
  - Stomatitis [Recovering/Resolving]
  - Hypertension [Not Recovered/Not Resolved]
  - Bronchitis [Not Recovered/Not Resolved]

NARRATIVE: CASE EVENT DATE: 20170109
